FAERS Safety Report 5755541-1 (Version None)
Quarter: 2008Q2

REPORT INFORMATION
  Report Type: 
  Country: None (occurrence: None)
  Receive Date: 20080602
  Receipt Date: 20080519
  Transmission Date: 20081010
  Serious: Yes (Other)
  Sender: FDA-Public Use
  Company Number: JP-GENENTECH-261672

PATIENT
  Sex: Female

DRUGS (14)
  1. AVASTIN [Suspect]
     Indication: RECTAL CANCER RECURRENT
     Dosage: 5 MG/KG, UNK
     Route: 041
     Dates: start: 20071022
  2. IRINOTECAN HCL [Concomitant]
     Indication: DRUG USE FOR UNKNOWN INDICATION
     Dates: start: 20071022
  3. FLUOROURACIL [Concomitant]
     Indication: DRUG USE FOR UNKNOWN INDICATION
     Dates: start: 20071022
  4. ISOVORIN [Concomitant]
     Indication: DRUG USE FOR UNKNOWN INDICATION
     Dates: start: 20071022
  5. FAMOTIDINE [Concomitant]
     Indication: DRUG USE FOR UNKNOWN INDICATION
     Dates: start: 20080317
  6. ALUMINUM HYDROXIDE [Concomitant]
     Indication: DRUG USE FOR UNKNOWN INDICATION
     Dates: start: 20080317
  7. AMYLASE [Concomitant]
     Indication: DRUG USE FOR UNKNOWN INDICATION
     Dates: start: 20080317
  8. BOTANICALS [Concomitant]
     Indication: DRUG USE FOR UNKNOWN INDICATION
     Dates: start: 20080317
  9. CALCIUM CARBONATE [Concomitant]
     Indication: DRUG USE FOR UNKNOWN INDICATION
     Dates: start: 20080317
  10. MAGNESIUM CARBONATE [Concomitant]
     Indication: DRUG USE FOR UNKNOWN INDICATION
     Dates: start: 20080317
  11. SODIUM BICARBONATE [Concomitant]
     Indication: DRUG USE FOR UNKNOWN INDICATION
     Dates: start: 20080317
  12. BIFIDOBACTERIUM [Concomitant]
     Indication: DIARRHOEA
  13. HANGE-SHASHIN-TO [Concomitant]
     Indication: DIARRHOEA
  14. LOPERAMIDE HYDROCHLORIDE [Concomitant]
     Indication: DIARRHOEA

REACTIONS (2)
  - TUMOUR HAEMORRHAGE [None]
  - WHITE BLOOD CELL COUNT DECREASED [None]
